FAERS Safety Report 4922096-0 (Version None)
Quarter: 2006Q1

REPORT INFORMATION
  Report Type: 
  Country: None (occurrence: None)
  Receive Date: 20060222
  Receipt Date: 20060222
  Transmission Date: 20060701
  Serious: Yes (Hospitalization)
  Sender: FDA-Public Use
  Company Number: None

PATIENT
  Age: 54 Year
  Sex: Male
  Weight: 88 kg

DRUGS (13)
  1. PEGINTERFERON ALPHA-2A [Suspect]
     Indication: HEPATITIS C VIRUS
     Dosage: 180 MCG QWK ID
     Route: 023
     Dates: start: 20050320, end: 20051105
  2. LORTAB [Concomitant]
  3. ATENOLOL [Concomitant]
  4. BACLOFEN [Concomitant]
  5. CLONIDINE [Concomitant]
  6. FE H [Concomitant]
  7. FUROSEMIDE [Concomitant]
  8. LISINOPRIL [Concomitant]
  9. METFORMIN [Concomitant]
  10. OMEPRAZOLE [Concomitant]
  11. PENTOXIFYLLINE [Concomitant]
  12. POTASSIUM CHLORIDE [Concomitant]
  13. SIMETHICONE [Concomitant]

REACTIONS (6)
  - ACTIVATED PARTIAL THROMBOPLASTIN TIME PROLONGED [None]
  - FACTOR VIII INHIBITION [None]
  - OEDEMA PERIPHERAL [None]
  - PAIN [None]
  - PARAESTHESIA [None]
  - PRURITUS [None]
